FAERS Safety Report 12411199 (Version 1)
Quarter: 2016Q2

REPORT INFORMATION
  Report Type: Spontaneous
  Country: CH (occurrence: CH)
  Receive Date: 20160527
  Receipt Date: 20160527
  Transmission Date: 20160815
  Serious: Yes (Other)
  Sender: FDA-Public Use
  Company Number: CH-AMGEN-CHESP2015113046

PATIENT
  Age: 47 Year
  Sex: Female
  Weight: 58 kg

DRUGS (5)
  1. ECOFENAC [Concomitant]
     Active Substance: DICLOFENAC SODIUM
     Indication: ARTHRITIS
     Dosage: 75 MG, AS NEEDED DAILY
  2. RHEUMON [Concomitant]
     Indication: ARTHRITIS
     Dosage: AS NEEDED, 3 TO 4 TIMES DAILY
  3. AZARGA [Concomitant]
     Active Substance: BRINZOLAMIDE\TIMOLOL MALEATE
     Indication: GLAUCOMA
     Dosage: UNK
  4. ALPHAGEN [Concomitant]
     Indication: GLAUCOMA
     Dosage: UNK
  5. ENBREL [Suspect]
     Active Substance: ETANERCEPT
     Indication: RHEUMATOID ARTHRITIS
     Dosage: 50 MG, ONCE WEEKLY
     Route: 058
     Dates: start: 20130727

REACTIONS (3)
  - Condition aggravated [Unknown]
  - Iron deficiency [Unknown]
  - Fatigue [Unknown]

NARRATIVE: CASE EVENT DATE: 201507
